FAERS Safety Report 5715897-2 (Version None)
Quarter: 2008Q2

REPORT INFORMATION
  Report Type: 
  Country: None (occurrence: None)
  Receive Date: 20080424
  Receipt Date: 20080422
  Transmission Date: 20081010
  Serious: Yes (Other)
  Sender: FDA-Public Use
  Company Number: ES-WYE-G01446608

PATIENT
  Age: 70 Year
  Sex: Female

DRUGS (7)
  1. RAPAMUNE [Suspect]
     Indication: RENAL TRANSPLANT
     Route: 048
     Dates: start: 20070301
  2. HEMOVAS [Concomitant]
     Indication: VENOUS THROMBOSIS
     Route: 048
  3. ALDACTONE [Concomitant]
     Route: 048
  4. TROMALYT [Concomitant]
     Indication: VENOUS THROMBOSIS
     Route: 048
  5. PREDNISONE [Concomitant]
     Route: 048
  6. ZANTAC [Concomitant]
     Route: 048
  7. ROCALTROL [Concomitant]
     Indication: RENAL FAILURE
     Route: 048

REACTIONS (1)
  - CYST [None]
